FAERS Safety Report 18427417 (Version 1)
Quarter: 2020Q4

REPORT INFORMATION
  Report Type: Spontaneous
  Country: US (occurrence: US)
  Receive Date: 20201026
  Receipt Date: 20201026
  Transmission Date: 20210114
  Serious: No
  Sender: FDA-Public Use
  Company Number: US-KYOWAKIRIN-2020BKK017157

PATIENT

DRUGS (1)
  1. NOURIANZ [Suspect]
     Active Substance: ISTRADEFYLLINE
     Indication: PARKINSON^S DISEASE
     Dosage: 20 MG, ONCE DAILY
     Route: 048
     Dates: start: 202010, end: 20201019

REACTIONS (3)
  - Nausea [Unknown]
  - Insomnia [Unknown]
  - Dyskinesia [Unknown]

NARRATIVE: CASE EVENT DATE: 202010
